FAERS Safety Report 20688386 (Version 1)
Quarter: 2022Q2

REPORT INFORMATION
  Report Type: Spontaneous
  Country: GB (occurrence: GB)
  Receive Date: 20220408
  Receipt Date: 20220408
  Transmission Date: 20220721
  Serious: Yes (Hospitalization)
  Sender: FDA-Public Use
  Company Number: GB-MACLEODS PHARMACEUTICALS US LTD-MAC2022035137

PATIENT

DRUGS (5)
  1. SILDENAFIL [Suspect]
     Active Substance: SILDENAFIL
     Indication: Erectile dysfunction
     Dosage: 50 MILLIGRAM, QD
     Route: 065
  2. SILDENAFIL [Suspect]
     Active Substance: SILDENAFIL
     Dosage: 100 MILLIGRAM, QD, INCREASED TO
     Route: 065
  3. Depixol [Concomitant]
     Indication: Bipolar disorder
     Dosage: 60 MILLIGRAM, Q.W.
     Route: 030
  4. LITHIUM [Concomitant]
     Active Substance: LITHIUM
     Indication: Bipolar disorder
     Dosage: 1000 MILLIGRAM, QD
     Route: 065
  5. DOTHIEPIN [Concomitant]
     Active Substance: DOTHIEPIN\DOTHIEPIN HYDROCHLORIDE
     Indication: Bipolar disorder
     Dosage: 100 MILLIGRAM, QD; NOCTE FOR 1 YEAR
     Route: 065

REACTIONS (2)
  - Disease recurrence [Recovered/Resolved]
  - Suicidal ideation [Recovered/Resolved]
